FAERS Safety Report 15820223 (Version 1)
Quarter: 2019Q1

REPORT INFORMATION
  Report Type: Spontaneous
  Country: NP (occurrence: NP)
  Receive Date: 20190114
  Receipt Date: 20190114
  Transmission Date: 20190417
  Serious: Yes (Other)
  Sender: FDA-Public Use
  Company Number: PHHY2019NP001186

PATIENT
  Age: 51 Year
  Sex: Male

DRUGS (4)
  1. ISONIAZID. [Suspect]
     Active Substance: ISONIAZID
     Indication: PULMONARY TUBERCULOSIS
     Dosage: UNK UKN, UNKNOWN
     Route: 065
  2. ETHAMBUTOL [Suspect]
     Active Substance: ETHAMBUTOL HYDROCHLORIDE
     Indication: PULMONARY TUBERCULOSIS
     Dosage: UNK UKN, UNKNOWN
     Route: 065
  3. RIFAMPICIN [Suspect]
     Active Substance: RIFAMPIN
     Indication: PULMONARY TUBERCULOSIS
     Dosage: UNK UKN, UNKNOWN
     Route: 065
  4. PYRAZINAMID [Suspect]
     Active Substance: PYRAZINAMIDE
     Indication: PULMONARY TUBERCULOSIS
     Dosage: UNK UKN, UNKNOWN
     Route: 065

REACTIONS (3)
  - Pulmonary nocardiosis [Recovered/Resolved]
  - Haemoptysis [Recovered/Resolved]
  - Cough [Recovered/Resolved]
